FAERS Safety Report 9248989 (Version 1)
Quarter: 2013Q1

REPORT INFORMATION
  Report Type: Spontaneous
  Country: US (occurrence: None)
  Receive Date: 20130305
  Receipt Date: 20130305
  Transmission Date: 20140127
  Serious: Yes (Hospitalization)
  Sender: FDA-Public Use
  Company Number: 163-21880-12053223

PATIENT
  Age: 67 Year
  Sex: Female

DRUGS (8)
  1. REVLIMID (LENALIDOMIDE)(15 MILLIGRAM, CAPSULES) [Suspect]
     Indication: PLASMA CELL MYELOMA
     Dosage: 1 IN 1 D
     Route: 048
     Dates: start: 201203, end: 2012
  2. CRESTOR (ROSUVASTATIN) [Concomitant]
  3. DILTIAZEM [Concomitant]
  4. TRAMADOL? [Concomitant]
  5. TRAZODONE [Concomitant]
  6. VITAMIN D3 [Concomitant]
  7. POTASSIUM CHLORIDE [Concomitant]
  8. PREVACID [Concomitant]

REACTIONS (1)
  - Cerebrovascular accident [None]
